FAERS Safety Report 7565193-6 (Version None)
Quarter: 2011Q2

REPORT INFORMATION
  Report Type: 
  Country: None (occurrence: None)
  Receive Date: 20110622
  Receipt Date: 20090116
  Transmission Date: 20111010
  Serious: Yes (Hospitalization)
  Sender: FDA-Public Use
  Company Number: PHHY2009DE68659

PATIENT
  Sex: Female
  Weight: 60 kg

DRUGS (4)
  1. LEVOTHYROXINE SODIUM [Concomitant]
     Dosage: 35 UG
  2. SANDOSTATIN LAR [Suspect]
     Indication: PANCREATIC NEUROENDOCRINE TUMOUR
     Dosage: 20 MG
     Route: 030
     Dates: start: 20081216
  3. EMBOLEX [Concomitant]
  4. PREDNISONE [Concomitant]
     Dosage: 4 MG, BID

REACTIONS (1)
  - THROMBOSIS [None]
